FAERS Safety Report 25057847 (Version 1)
Quarter: 2025Q1

REPORT INFORMATION
  Report Type: Spontaneous
  Country: MX (occurrence: MX)
  Receive Date: 20250310
  Receipt Date: 20250310
  Transmission Date: 20250408
  Serious: Yes (Death, Hospitalization, Other)
  Sender: IPCA
  Company Number: MX-IPCA LABORATORIES LIMITED-IPC-2025-MX-000514

PATIENT

DRUGS (1)
  1. LAMOTRIGINE [Suspect]
     Active Substance: LAMOTRIGINE
     Indication: Product used for unknown indication
     Route: 065

REACTIONS (29)
  - Toxic epidermal necrolysis [Fatal]
  - Septic shock [Fatal]
  - Liver injury [Fatal]
  - Gastrointestinal haemorrhage [Fatal]
  - Cardiac arrest [Fatal]
  - Multiple organ dysfunction syndrome [Fatal]
  - Renal injury [Fatal]
  - Hypokalaemia [Fatal]
  - Thrombocytopenia [Fatal]
  - Respiratory distress [Fatal]
  - Hypothermia [Fatal]
  - Conjunctivitis [Fatal]
  - Normochromic normocytic anaemia [Fatal]
  - Hypocalcaemia [Fatal]
  - Neutrophilia [Fatal]
  - Hyperglycaemia [Fatal]
  - Aspartate aminotransferase increased [Fatal]
  - Bacterial infection [Fatal]
  - Tachycardia [Fatal]
  - Hypotension [Fatal]
  - General physical health deterioration [Fatal]
  - Haemodynamic instability [Fatal]
  - Lymphopenia [Fatal]
  - Coagulopathy [Fatal]
  - Hypernatraemia [Fatal]
  - Hypochloraemia [Fatal]
  - Hyperlactacidaemia [Fatal]
  - Mucosal inflammation [Fatal]
  - Electrolyte imbalance [Fatal]
